FAERS Safety Report 14033257 (Version 1)
Quarter: 2017Q4

REPORT INFORMATION
  Report Type: Spontaneous
  Country: US (occurrence: US)
  Receive Date: 20171002
  Receipt Date: 20171002
  Transmission Date: 20180321
  Serious: No
  Sender: FDA-Public Use
  Company Number: US-JAZZ-2017-US-010016

PATIENT
  Sex: Female

DRUGS (41)
  1. PACLITAXEL. [Concomitant]
     Active Substance: PACLITAXEL
  2. OXYCODONE HYDROCHLORIDE. [Concomitant]
     Active Substance: OXYCODONE HYDROCHLORIDE
  3. ADVIL (MEFENAMIC ACID) [Concomitant]
     Active Substance: MEFENAMIC ACID
  4. XYREM [Suspect]
     Active Substance: SODIUM OXYBATE
     Indication: NARCOLEPSY
     Dosage: 2.25G, BID
     Route: 048
     Dates: start: 200610, end: 2006
  5. DULOXETINE HCL [Concomitant]
     Active Substance: DULOXETINE HYDROCHLORIDE
  6. HYDROCHLOROTHIAZIDE. [Concomitant]
     Active Substance: HYDROCHLOROTHIAZIDE
  7. METFORMIN HCL [Concomitant]
     Active Substance: METFORMIN HYDROCHLORIDE
  8. LETROZOLE. [Concomitant]
     Active Substance: LETROZOLE
  9. PREDNISONE. [Concomitant]
     Active Substance: PREDNISONE
  10. GABAPENTIN. [Concomitant]
     Active Substance: GABAPENTIN
  11. XYREM [Suspect]
     Active Substance: SODIUM OXYBATE
     Indication: CATAPLEXY
     Dosage: DOSE ADJUSTMENT
     Route: 048
     Dates: start: 2006, end: 2011
  12. XYREM [Suspect]
     Active Substance: SODIUM OXYBATE
     Dosage: 4.5G, BID
     Route: 048
     Dates: start: 201110
  13. ENALAPRIL MALEATE. [Concomitant]
     Active Substance: ENALAPRIL MALEATE
  14. METHYLPHENIDATE. [Concomitant]
     Active Substance: METHYLPHENIDATE
  15. METHYLIN ER [Concomitant]
     Active Substance: METHYLPHENIDATE HYDROCHLORIDE
  16. ARICEPT [Concomitant]
     Active Substance: DONEPEZIL HYDROCHLORIDE
  17. DEMADEX [Concomitant]
     Active Substance: TORSEMIDE
  18. RANITIDINE. [Concomitant]
     Active Substance: RANITIDINE
  19. CALCIUM CITRATE WITH VITAMIN D3 [Concomitant]
  20. PRAVASTATIN SODIUM. [Concomitant]
     Active Substance: PRAVASTATIN SODIUM
  21. FLEXERIL [Concomitant]
     Active Substance: CYCLOBENZAPRINE HYDROCHLORIDE
  22. LIPITOR [Concomitant]
     Active Substance: ATORVASTATIN CALCIUM
  23. TRAMADOL HCL [Concomitant]
     Active Substance: TRAMADOL HYDROCHLORIDE
  24. ASPIRIN 81 [Concomitant]
     Active Substance: ASPIRIN
  25. LANTUS [Concomitant]
     Active Substance: INSULIN GLARGINE
  26. GLYBURIDE MICRO [Concomitant]
  27. ADRIAMYCIN [Concomitant]
     Active Substance: DOXORUBICIN HYDROCHLORIDE
  28. CYCLOPHOSPHAMIDE. [Concomitant]
     Active Substance: CYCLOPHOSPHAMIDE
  29. REQUIP [Concomitant]
     Active Substance: ROPINIROLE HYDROCHLORIDE
  30. TRICOR                             /00090101/ [Concomitant]
     Active Substance: ADENOSINE
  31. VITAMIN D                          /00107901/ [Concomitant]
     Active Substance: ERGOCALCIFEROL
  32. ATENOLOL. [Concomitant]
     Active Substance: ATENOLOL
  33. AMLODIPINE BESYLATE. [Concomitant]
     Active Substance: AMLODIPINE BESYLATE
  34. IMIPRAMINE HCL [Concomitant]
     Active Substance: IMIPRAMINE HYDROCHLORIDE
  35. ANASTROZOLE. [Concomitant]
     Active Substance: ANASTROZOLE
  36. NOVOLOG [Concomitant]
     Active Substance: INSULIN ASPART
  37. SIMVASTATIN. [Concomitant]
     Active Substance: SIMVASTATIN
  38. FLONASE                            /00908302/ [Concomitant]
     Active Substance: MOMETASONE FUROATE
  39. HYDROXYCHLOROQUINE [Concomitant]
     Active Substance: HYDROXYCHLOROQUINE
  40. JANUVIA [Concomitant]
     Active Substance: SITAGLIPTIN PHOSPHATE
  41. TRIAMCINOLONE [Concomitant]
     Active Substance: TRIAMCINOLONE

REACTIONS (1)
  - Dry mouth [Unknown]
